FAERS Safety Report 11403974 (Version 1)
Quarter: 2015Q3

REPORT INFORMATION
  Report Type: Spontaneous
  Country: US (occurrence: None)
  Receive Date: 20150820
  Receipt Date: 20150820
  Transmission Date: 20151125
  Serious: Yes (Disabling)
  Sender: FDA-Public Use
  Company Number: None

PATIENT
  Age: 35 Year
  Sex: Male
  Weight: 71.67 kg

DRUGS (1)
  1. MIRVASO [Suspect]
     Active Substance: BRIMONIDINE TARTRATE
     Indication: ROSACEA
     Dosage: PEA SIZE AMOUNT APPLIED TO A SURFACE, USUALLY THE SKIN
     Route: 061
     Dates: start: 20150723, end: 20150802

REACTIONS (2)
  - Rebound effect [None]
  - Flushing [None]

NARRATIVE: CASE EVENT DATE: 20150802
